FAERS Safety Report 5989136-1 (Version None)
Quarter: 2008Q4

REPORT INFORMATION
  Report Type: 
  Country: None (occurrence: None)
  Receive Date: 20081210
  Receipt Date: 20081205
  Transmission Date: 20090506
  Serious: Yes (Hospitalization)
  Sender: FDA-Public Use
  Company Number: US-JNJFOC-20081202032

PATIENT
  Sex: Male
  Weight: 70.31 kg

DRUGS (9)
  1. DURAGESIC-100 [Suspect]
     Indication: MUSCLE INJURY
     Route: 062
  2. DURAGESIC-100 [Suspect]
     Indication: PAIN
     Route: 062
  3. DILANTIN [Concomitant]
     Indication: CONVULSION
     Route: 048
  4. PREDNISONE TAB [Concomitant]
     Indication: EMPHYSEMA
     Route: 048
  5. CYMBALTA [Concomitant]
     Indication: NERVOUSNESS
     Route: 048
  6. VALIUM [Concomitant]
     Indication: NERVOUSNESS
     Route: 048
  7. AMITRIPTYLINE HCL [Concomitant]
     Indication: SLEEP DISORDER
     Route: 048
  8. STARLIX [Concomitant]
     Indication: DIABETES MELLITUS
     Route: 048
  9. PERCOCET [Concomitant]
     Indication: PAIN
     Dosage: 5/325 MG
     Route: 048

REACTIONS (6)
  - DYSPNOEA [None]
  - INADEQUATE ANALGESIA [None]
  - INCORRECT DRUG ADMINISTRATION DURATION [None]
  - PNEUMONIA [None]
  - PRODUCT QUALITY ISSUE [None]
  - PULMONARY OEDEMA [None]
